FAERS Safety Report 12319799 (Version 1)
Quarter: 2016Q2

REPORT INFORMATION
  Report Type: Spontaneous
  Country: US (occurrence: US)
  Receive Date: 20160429
  Receipt Date: 20160429
  Transmission Date: 20160815
  Serious: No
  Sender: FDA-Public Use
  Company Number: US-ROCHE-1627767

PATIENT
  Age: 89 Year
  Sex: Male

DRUGS (1)
  1. ESBRIET [Suspect]
     Active Substance: PIRFENIDONE
     Indication: IDIOPATHIC PULMONARY FIBROSIS
     Route: 048
     Dates: start: 20150825

REACTIONS (5)
  - Vision blurred [Unknown]
  - Constipation [Unknown]
  - Dizziness [Unknown]
  - Somnolence [Unknown]
  - Productive cough [Unknown]

NARRATIVE: CASE EVENT DATE: 20150827
